FAERS Safety Report 21706616 (Version 1)
Quarter: 2022Q4

REPORT INFORMATION
  Report Type: Spontaneous
  Country: GR (occurrence: GR)
  Receive Date: 20221209
  Receipt Date: 20221209
  Transmission Date: 20230113
  Serious: Yes (Hospitalization, Other)
  Sender: FDA-Public Use
  Company Number: GR-BAXTER-2022BAX026294

PATIENT
  Age: 57 Year
  Sex: Female

DRUGS (21)
  1. IFOSFAMIDE [Suspect]
     Active Substance: IFOSFAMIDE
     Indication: Hodgkin^s disease
     Dosage: A CYCLE OF DICE THERAPY IN COMBINATION WITH BV
     Route: 065
  2. DOXORUBICIN [Suspect]
     Active Substance: DOXORUBICIN
     Indication: Hodgkin^s disease
     Dosage: ABVD REGIMEN, 2 FULL CYCLES
     Route: 065
  3. DOXORUBICIN [Suspect]
     Active Substance: DOXORUBICIN
     Indication: Hodgkin^s disease nodular sclerosis stage IV
  4. DOXORUBICIN [Suspect]
     Active Substance: DOXORUBICIN
     Indication: Metastases to breast
  5. ETOPOSIDE [Suspect]
     Active Substance: ETOPOSIDE
     Indication: Hodgkin^s disease
     Dosage: A CYCLE OF DICE THERAPY IN COMBINATION WITH BV
     Route: 065
  6. DEXAMETHASONE [Suspect]
     Active Substance: DEXAMETHASONE
     Indication: Hodgkin^s disease
     Dosage: ONE CYCLE OF DHAP REGIMEN
     Route: 065
  7. DEXAMETHASONE [Suspect]
     Active Substance: DEXAMETHASONE
     Dosage: A CYCLE OF DICE THERAPY IN COMBINATION WITH BV
     Route: 065
  8. CISPLATIN [Suspect]
     Active Substance: CISPLATIN
     Indication: Hodgkin^s disease
     Dosage: ONE CYCLE OF DHAP REGIMEN
     Route: 065
  9. CISPLATIN [Suspect]
     Active Substance: CISPLATIN
     Dosage: A CYCLE OF DICE THERAPY IN COMBINATION WITH BV
     Route: 065
  10. BRENTUXIMAB VEDOTIN [Suspect]
     Active Substance: BRENTUXIMAB VEDOTIN
     Indication: Hodgkin^s disease
     Dosage: A CYCLE OF DICE THERAPY IN COMBINATION WITH BV
     Route: 065
  11. BRENTUXIMAB VEDOTIN [Suspect]
     Active Substance: BRENTUXIMAB VEDOTIN
     Dosage: 1.8 MG/KG EVERY THREE WEEKS
     Route: 065
  12. CYTARABINE [Concomitant]
     Active Substance: CYTARABINE
     Indication: Hodgkin^s disease
     Dosage: ONE CYCLE OF DHAP REGIMEN
     Route: 065
  13. BLEOMYCIN [Concomitant]
     Active Substance: BLEOMYCIN SULFATE
     Indication: Hodgkin^s disease
     Dosage: ABVD REGIMEN, 2 FULL CYCLES
     Route: 065
  14. BLEOMYCIN [Concomitant]
     Active Substance: BLEOMYCIN SULFATE
     Indication: Hodgkin^s disease nodular sclerosis stage IV
  15. BLEOMYCIN [Concomitant]
     Active Substance: BLEOMYCIN SULFATE
     Indication: Metastases to breast
  16. VINBLASTINE [Concomitant]
     Active Substance: VINBLASTINE
     Indication: Hodgkin^s disease
     Dosage: ABVD REGIMEN, 2 FULL CYCLES
     Route: 065
  17. VINBLASTINE [Concomitant]
     Active Substance: VINBLASTINE
     Indication: Hodgkin^s disease nodular sclerosis stage IV
  18. VINBLASTINE [Concomitant]
     Active Substance: VINBLASTINE
     Indication: Metastases to breast
  19. DACARBAZINE [Concomitant]
     Active Substance: DACARBAZINE
     Indication: Hodgkin^s disease
     Dosage: ABVD REGIMEN, 2 FULL CYCLES
     Route: 065
  20. DACARBAZINE [Concomitant]
     Active Substance: DACARBAZINE
     Indication: Hodgkin^s disease nodular sclerosis stage IV
  21. DACARBAZINE [Concomitant]
     Active Substance: DACARBAZINE
     Indication: Metastases to breast

REACTIONS (4)
  - Febrile neutropenia [Recovering/Resolving]
  - Pyelonephritis [Recovering/Resolving]
  - Haematotoxicity [Recovering/Resolving]
  - Anaemia [Recovering/Resolving]
